FAERS Safety Report 16721727 (Version 1)
Quarter: 2019Q3

REPORT INFORMATION
  Report Type: Spontaneous
  Country: GB (occurrence: GB)
  Receive Date: 20190820
  Receipt Date: 20190820
  Transmission Date: 20191005
  Serious: Yes (Hospitalization)
  Sender: FDA-Public Use
  Company Number: GB-MYLANLABS-2019M1077651

PATIENT
  Age: 46 Year

DRUGS (7)
  1. SERTRALINE [Suspect]
     Active Substance: SERTRALINE HYDROCHLORIDE
     Indication: PRODUCT USED FOR UNKNOWN INDICATION
     Dosage: 100 MILLIGRAM, AM,QD,EACH MORNING
     Route: 065
  2. FELODIPINE. [Concomitant]
     Active Substance: FELODIPINE
     Dosage: 5 MILLIGRAM, AM, QD,EACH MORNING
  3. BISOPROLOL [Concomitant]
     Active Substance: BISOPROLOL
     Dosage: 2.5 MILLIGRAM, QD
  4. LANSOPRAZOLE. [Concomitant]
     Active Substance: LANSOPRAZOLE
     Dosage: 60 MILLIGRAM, AM,IN THE MORNING
  5. RAMIPRIL. [Concomitant]
     Active Substance: RAMIPRIL
     Dosage: 10 MILLIGRAM, QD
  6. ACETYLSALICYLIC ACID [Suspect]
     Active Substance: ASPIRIN
     Indication: PRODUCT USED FOR UNKNOWN INDICATION
     Dosage: 75 MILLIGRAM, QD
  7. ATORVASTATIN [Concomitant]
     Active Substance: ATORVASTATIN
     Dosage: 80 MILLIGRAM, PM, QD, EACH NIGHT

REACTIONS (6)
  - Gastrointestinal haemorrhage [Unknown]
  - Gastritis [Unknown]
  - Melaena [Unknown]
  - Duodenal ulcer [Unknown]
  - Haematemesis [Unknown]
  - Erosive duodenitis [Unknown]
